FAERS Safety Report 5328666-2 (Version None)
Quarter: 2007Q2

REPORT INFORMATION
  Report Type: 
  Country: None (occurrence: None)
  Receive Date: 20070518
  Receipt Date: 20070515
  Transmission Date: 20071010
  Serious: Yes (Death)
  Sender: FDA-Public Use
  Company Number: A0648726A

PATIENT
  Age: 66 Year
  Sex: Male
  Weight: 85.5 kg

DRUGS (3)
  1. COREG [Suspect]
     Route: 048
     Dates: start: 20050501
  2. RANEXA [Concomitant]
  3. UNKNOWN MEDICATION [Concomitant]

REACTIONS (6)
  - CARDIAC FAILURE [None]
  - CHEST DISCOMFORT [None]
  - DYSPNOEA [None]
  - DYSPNOEA EXERTIONAL [None]
  - OEDEMA PERIPHERAL [None]
  - ORTHOPNOEA [None]
